FAERS Safety Report 17878201 (Version 2)
Quarter: 2023Q4

REPORT INFORMATION
  Report Type: Spontaneous
  Country: US (occurrence: US)
  Receive Date: 20200610
  Receipt Date: 20231101
  Transmission Date: 20240109
  Serious: Yes (Hospitalization, Other)
  Sender: FDA-Public Use
  Company Number: US-ADVANZ PHARMA-202005006268

PATIENT

DRUGS (12)
  1. PREDNISOLONE [Suspect]
     Active Substance: PREDNISOLONE
     Dosage: WEEKLY 4,3,2,1 PREDNISOLONE ACETATE 1% TAPER.
  2. LOTEPREDNOL ETABONATE [Suspect]
     Active Substance: LOTEPREDNOL ETABONATE
     Indication: Glaucoma
     Dosage: THREE TIMES PER DAY IN THE LEFT EYE
  3. LOTEPREDNOL ETABONATE [Suspect]
     Active Substance: LOTEPREDNOL ETABONATE
     Dosage: THREE TIMES PER DAY IN THE LEFT EYE
  4. INTERFERON ALFA-2B [Suspect]
     Active Substance: INTERFERON ALFA-2B
     Indication: Ocular surface squamous neoplasia
     Dosage: UNK UNK, QID
     Route: 061
  5. LATANOPROST [Suspect]
     Active Substance: LATANOPROST
     Indication: Glaucoma
     Dosage: ONCE AT NIGHT IN THE LEFT EYE
  6. LATANOPROST [Suspect]
     Active Substance: LATANOPROST
     Dosage: ONCE AT NIGHT IN THE LEFT EYE
  7. DORZOLAMIDE [Suspect]
     Active Substance: DORZOLAMIDE
     Indication: Glaucoma
     Dosage: ONCE IN THE MORNING IN THE LEFT EYE
  8. DORZOLAMIDE [Suspect]
     Active Substance: DORZOLAMIDE
     Dosage: ONCE IN THE MORNING IN THE LEFT EYE
  9. DOXYCYCLINE [Concomitant]
     Active Substance: DOXYCYCLINE
     Dosage: UNK
     Route: 048
  10. DOXYCYCLINE [Concomitant]
     Active Substance: DOXYCYCLINE
     Dosage: UNK
     Route: 048
  11. VIGAMOX [Concomitant]
     Active Substance: MOXIFLOXACIN HYDROCHLORIDE
     Dosage: UNK, QID
  12. VIGAMOX [Concomitant]
     Active Substance: MOXIFLOXACIN HYDROCHLORIDE
     Dosage: UNK

REACTIONS (3)
  - Ulcerative keratitis [Unknown]
  - Corneal perforation [Unknown]
  - Off label use [Unknown]
